FAERS Safety Report 23079585 (Version 1)
Quarter: 2023Q4

REPORT INFORMATION
  Report Type: Spontaneous
  Country: US (occurrence: US)
  Receive Date: 20231018
  Receipt Date: 20231018
  Transmission Date: 20240110
  Serious: Yes (Life-Threatening, Other)
  Sender: FDA-Public Use
  Company Number: US-AMGEN-USASP2023183881

PATIENT
  Age: 60 Year
  Sex: Female

DRUGS (1)
  1. RITUXIMAB [Suspect]
     Active Substance: RITUXIMAB
     Indication: Glomerulonephritis rapidly progressive
     Dosage: UNK
     Route: 065

REACTIONS (6)
  - Cardio-respiratory arrest [Unknown]
  - Septic shock [Unknown]
  - Cholangitis acute [Unknown]
  - Systemic candida [Unknown]
  - Posterior reversible encephalopathy syndrome [Unknown]
  - Infection [Unknown]
